FAERS Safety Report 11104399 (Version 2)
Quarter: 2020Q2

REPORT INFORMATION
  Report Type: Spontaneous
  Country: US (occurrence: US)
  Receive Date: 20150511
  Receipt Date: 20200518
  Transmission Date: 20200713
  Serious: No
  Sender: FDA-Public Use
  Company Number: US-ENDO PHARMACEUTICALS INC.-PRAN20150001

PATIENT
  Sex: Female

DRUGS (2)
  1. PROPRANOLOL [Concomitant]
     Active Substance: PROPRANOLOL HYDROCHLORIDE
     Indication: BLOOD PRESSURE MANAGEMENT
  2. PROPRANOLOL HYDROCHLORIDE. [Suspect]
     Active Substance: PROPRANOLOL HYDROCHLORIDE
     Indication: BLOOD PRESSURE MANAGEMENT
     Dosage: 20 MG UNKNOWN, UNKNOWN
     Route: 065

REACTIONS (3)
  - Hypersensitivity [Unknown]
  - Atrial fibrillation [Unknown]
  - Drug ineffective [Recovered/Resolved]
